FAERS Safety Report 8067458 (Version 3)
Quarter: 2013Q4

REPORT INFORMATION
  Report Type: Report from Study
  Country: FR (occurrence: FR)
  Receive Date: 20110803
  Receipt Date: 20131126
  Transmission Date: 20140711
  Serious: Yes (Other)
  Sender: FDA-Public Use
  Company Number: FR-VIIV HEALTHCARE LIMITED-B0691820A

PATIENT
  Age: 51 Year
  Sex: Male
  Weight: 82 kg

DRUGS (5)
  1. MARAVIROC [Suspect]
     Indication: HIV INFECTION
     Dosage: 300MG TWICE PER DAY
     Dates: start: 20080313
  2. AMAREL [Concomitant]
     Indication: DIABETES MELLITUS
     Route: 048
  3. INSULATARD [Concomitant]
     Indication: DIABETES MELLITUS
     Route: 058
  4. NOVORAPID [Concomitant]
     Indication: DIABETES MELLITUS
     Route: 058
  5. TRUVADA [Concomitant]
     Indication: HIV INFECTION
     Dates: start: 20051201

REACTIONS (1)
  - Hodgkin^s disease [Recovered/Resolved]
